FAERS Safety Report 9276316 (Version 1)
Quarter: 2012Q4

REPORT INFORMATION
  Report Type: 
  Country: FR (occurrence: None)
  Receive Date: 20121109
  Receipt Date: 20121109
  Transmission Date: 20130627
  Serious: Yes (Hospitalization, Other)
  Sender: FDA-Public Use
  Company Number: 2012S000241

PATIENT
  Age: 12 Year
  Sex: Female
  Weight: 40.5 kg

DRUGS (24)
  1. CUBICIN [Suspect]
     Indication: SEPTICEMIA
     Route: 042
     Dates: start: 20120101
  2. METHOTREXATE (METHOTREXATE) [Suspect]
     Route: 042
     Dates: start: 20111021, end: 20111104
  3. VP-16 [Suspect]
     Route: 042
     Dates: start: 20111116
  4. ZOLEDRONATE [Suspect]
     Indication: OSTEOSARCOMA
     Route: 042
     Dates: start: 20111024
  5. IFOSFAMIDE [Suspect]
     Route: 042
     Dates: start: 20111116
  6. ENDOXAN [Suspect]
     Dates: start: 20111129, end: 20111230
  7. ALL OTHER THERAPEUTIC PRODUCTS [Concomitant]
  8. SKENAN [Concomitant]
  9. ATARAX /00595201/ [Concomitant]
  10. UROMITEXAN [Concomitant]
  11. PERFALGAN [Concomitant]
  12. AZANTAC [Concomitant]
  13. TAZOCILLINE [Concomitant]
  14. TARGOCID [Concomitant]
  15. VANCOMYCIN [Concomitant]
  16. GENTAMICIN [Concomitant]
  17. LURIDE [Concomitant]
  18. ZYVOXID [Concomitant]
  19. PLITICAN [Concomitant]
  20. CALCIUM FOLINATE [Concomitant]
  21. CALCIUM [Concomitant]
  22. PHOSPHORUS [Concomitant]
  23. ERGOCALCIFEROL [Concomitant]
  24. VITAMIN D NOS [Concomitant]

REACTIONS (12)
  - Toxicity to various agents [None]
  - Sepsis [None]
  - Encephalopathy [None]
  - Hypocalcaemia [None]
  - Mucosal inflammation [None]
  - Aspergillus test positive [None]
  - Staphylococcal infection [None]
  - Staphylococcal infection [None]
  - Blood magnesium decreased [None]
  - Blood sodium decreased [None]
  - Aplasia [None]
  - Blood potassium decreased [None]
